FAERS Safety Report 5794520-5 (Version None)
Quarter: 2008Q2

REPORT INFORMATION
  Report Type: 
  Country: None (occurrence: None)
  Receive Date: 20080626
  Receipt Date: 20080616
  Transmission Date: 20081010
  Serious: Yes (Life-Threatening, Hospitalization)
  Sender: FDA-Public Use
  Company Number: 100#08#2008-03196

PATIENT
  Age: 11 Year
  Sex: Male

DRUGS (10)
  1. FLUCONAZOLE [Suspect]
     Indication: CANDIDIASIS
     Dosage: 150 MG EVERY 12 HOURS INTRAVENOUS
     Route: 042
  2. AMIODARONE HCL [Suspect]
     Indication: VENTRICULAR TACHYCARDIA
     Dosage: 5 MG/KG INTRAVENOUS
     Route: 042
  3. MEROPENEM (MEROPENEM) [Concomitant]
  4. FUROSEMIDE [Concomitant]
  5. KETAMINE HCL [Concomitant]
  6. MIDAZOLAM HCL [Concomitant]
  7. LORAZEPAM [Concomitant]
  8. CHLORAL HYDRATE (CHLORAL HYDRATE) [Concomitant]
  9. ACETAMINOPHEN [Concomitant]
  10. IBUPROFEN [Concomitant]

REACTIONS (9)
  - ELECTROCARDIOGRAM QT PROLONGED [None]
  - HYPOCALCAEMIA [None]
  - HYPOKALAEMIA [None]
  - HYPOMAGNESAEMIA [None]
  - RESPIRATORY ACIDOSIS [None]
  - TORSADE DE POINTES [None]
  - VENTRICULAR ARRHYTHMIA [None]
  - VENTRICULAR EXTRASYSTOLES [None]
  - VENTRICULAR TACHYCARDIA [None]
